FAERS Safety Report 6188669-5 (Version None)
Quarter: 2009Q2

REPORT INFORMATION
  Report Type: 
  Country: None (occurrence: None)
  Receive Date: 20090513
  Receipt Date: 20090504
  Transmission Date: 20091009
  Serious: Yes (Life-Threatening, Hospitalization)
  Sender: FDA-Public Use
  Company Number: FR-WATSON-2009-03173

PATIENT
  Age: 49 Year
  Sex: Male

DRUGS (1)
  1. CHLOROQUINE (WATSON LABORATORIES) [Suspect]
     Indication: CUTANEOUS LUPUS ERYTHEMATOSUS
     Dosage: 200 MG, DAILY
     Route: 065
     Dates: start: 20080101

REACTIONS (3)
  - ATRIOVENTRICULAR BLOCK COMPLETE [None]
  - CARDIO-RESPIRATORY ARREST [None]
  - DRUG TOXICITY [None]
